FAERS Safety Report 8340179-2 (Version None)
Quarter: 2012Q2

REPORT INFORMATION
  Report Type: 
  Country: None (occurrence: None)
  Receive Date: 20120507
  Receipt Date: 20120124
  Transmission Date: 20120825
  Serious: No
  Sender: FDA-Public Use
  Company Number: US-ASTRAZENECA-2012SE04987

PATIENT
  Sex: Male

DRUGS (2)
  1. AUGMENTIN [Concomitant]
  2. VIMOVO [Suspect]
     Indication: INFLAMMATION
     Route: 048

REACTIONS (1)
  - FEELING HOT [None]
